FAERS Safety Report 8988480 (Version 1)
Quarter: 2012Q4

REPORT INFORMATION
  Report Type: Spontaneous
  Country: US (occurrence: None)
  Receive Date: 20121224
  Receipt Date: 20121224
  Transmission Date: 20130627
  Serious: Yes (Other)
  Sender: FDA-Public Use
  Company Number: None

PATIENT
  Sex: Female
  Weight: 92.53 kg

DRUGS (12)
  1. XELODA [Suspect]
     Indication: BREAST CANCER
     Dosage: 500mg , 4 tablets bid po
     Route: 048
     Dates: start: 20120302, end: 20121209
  2. CALTRATE WITH VITAMIN D [Concomitant]
  3. MG [Concomitant]
  4. VIT C [Concomitant]
  5. CETIRIZINE [Concomitant]
  6. ALEVE [Concomitant]
  7. METOPROLOL [Concomitant]
  8. OMEPRAZOLE [Concomitant]
  9. LORAZEPAM [Concomitant]
  10. ONDANSETRON [Concomitant]
  11. LASIX [Concomitant]
  12. KCL W/LASIX [Concomitant]

REACTIONS (4)
  - Oedema peripheral [None]
  - Oedema peripheral [None]
  - Tumour marker increased [None]
  - Skin disorder [None]
